FAERS Safety Report 20441549 (Version 1)
Quarter: 2022Q1

REPORT INFORMATION
  Report Type: Report from Study
  Country: US (occurrence: US)
  Receive Date: 20220208
  Receipt Date: 20220208
  Transmission Date: 20220423
  Serious: Yes (Hospitalization)
  Sender: FDA-Public Use
  Company Number: US-TAKEDA-US201800072

PATIENT
  Age: 5 Year
  Sex: Female
  Weight: 13.6 kg

DRUGS (8)
  1. TEDUGLUTIDE [Suspect]
     Active Substance: TEDUGLUTIDE
     Indication: Short-bowel syndrome
     Route: 065
  2. TEDUGLUTIDE [Suspect]
     Active Substance: TEDUGLUTIDE
     Indication: Short-bowel syndrome
     Route: 065
  3. TEDUGLUTIDE [Suspect]
     Active Substance: TEDUGLUTIDE
     Indication: Short-bowel syndrome
     Route: 065
  4. TEDUGLUTIDE [Suspect]
     Active Substance: TEDUGLUTIDE
     Indication: Short-bowel syndrome
     Route: 065
  5. VANCOMYCIN [Concomitant]
     Active Substance: VANCOMYCIN
     Indication: Vascular device infection
     Dosage: 365 MILLIGRAM, TID
     Route: 042
     Dates: start: 20171218, end: 20180101
  6. MICAFUNGIN [Concomitant]
     Active Substance: MICAFUNGIN
     Indication: Vascular device infection
     Dosage: 100 MILLIGRAM, QD
     Route: 042
     Dates: start: 20190626, end: 20190702
  7. CEFEPIME [Concomitant]
     Active Substance: CEFEPIME HYDROCHLORIDE
     Indication: Vascular device infection
     Dosage: 1025 MILLIGRAM, TID
     Route: 042
     Dates: start: 20190502, end: 20190516
  8. FLUCONAZOLE [Concomitant]
     Active Substance: FLUCONAZOLE
     Indication: Vascular device infection
     Dosage: 200 MILLIGRAM, QD
     Route: 042
     Dates: start: 20180426, end: 20180505

REACTIONS (1)
  - Pyrexia [Recovered/Resolved]

NARRATIVE: CASE EVENT DATE: 20170918
